FAERS Safety Report 21303656 (Version 1)
Quarter: 2022Q3

REPORT INFORMATION
  Report Type: Report from Study
  Country: JP (occurrence: JP)
  Receive Date: 20220907
  Receipt Date: 20220907
  Transmission Date: 20221027
  Serious: Yes (Other)
  Sender: FDA-Public Use
  Company Number: JP-Eisai-202207149_BOLD-LF_C_1

PATIENT
  Age: 72 Year
  Weight: 61 kg

DRUGS (4)
  1. ERIBULIN [Suspect]
     Active Substance: ERIBULIN
     Indication: Neoplasm
     Dosage: DOSE UNKNOWN
     Route: 042
     Dates: start: 20190329, end: 2019
  2. ERIBULIN [Suspect]
     Active Substance: ERIBULIN
     Route: 042
     Dates: start: 20190613, end: 20220314
  3. OLMESARTAN [Concomitant]
     Active Substance: OLMESARTAN
     Indication: Hypertension
     Route: 048
     Dates: start: 20210531
  4. CILOSTAZOL [Concomitant]
     Active Substance: CILOSTAZOL
     Indication: Sinus node dysfunction
     Route: 048
     Dates: start: 20210913

REACTIONS (1)
  - Myelodysplastic syndrome [Not Recovered/Not Resolved]

NARRATIVE: CASE EVENT DATE: 20220815
